FAERS Safety Report 17933697 (Version 2)
Quarter: 2020Q3

REPORT INFORMATION
  Report Type: Spontaneous
  Country: KR (occurrence: KR)
  Receive Date: 20200624
  Receipt Date: 20200708
  Transmission Date: 20201103
  Serious: Yes (Death, Hospitalization, Other)
  Sender: FDA-Public Use
  Company Number: KR-VISTAPHARM, INC.-VER202006-001147

PATIENT
  Age: 36 Year
  Sex: Female

DRUGS (1)
  1. PREDNISOLONE. [Suspect]
     Active Substance: PREDNISOLONE
     Indication: SYSTEMIC LUPUS ERYTHEMATOSUS
     Dosage: 10?30 MG
     Route: 048

REACTIONS (3)
  - Uterine rupture [Not Recovered/Not Resolved]
  - Exposure during pregnancy [Unknown]
  - Death neonatal [None]
